FAERS Safety Report 18661076 (Version 2)
Quarter: 2021Q1

REPORT INFORMATION
  Report Type: Spontaneous
  Country: US (occurrence: US)
  Receive Date: 20201224
  Receipt Date: 20210125
  Transmission Date: 20210419
  Serious: No
  Sender: FDA-Public Use
  Company Number: US-VERTEX PHARMACEUTICALS-2020-025187

PATIENT
  Sex: Female
  Weight: 13.61 kg

DRUGS (8)
  1. HYPERTONIC SALINE SOLUTION [Concomitant]
     Active Substance: SODIUM CHLORIDE
     Dosage: 7 % VIAL NEB
  2. LUTEIN [XANTOFYL] [Concomitant]
  3. CREON [Concomitant]
     Active Substance: PANCRELIPASE AMYLASE\PANCRELIPASE LIPASE\PANCRELIPASE PROTEASE
     Dosage: 6K?19K?30K CAPSULE DR
  4. ORKAMBI [Suspect]
     Active Substance: IVACAFTOR\LUMACAFTOR
     Indication: CYSTIC FIBROSIS
     Dosage: 1 DOSAGE FORM, BID (ONE PACKET BY MOUTH EVERY 12 HOURS)
     Route: 048
     Dates: start: 20200130
  5. PULMOZYME [Concomitant]
     Active Substance: DORNASE ALFA
     Dosage: 1MG/ML SOLUTION
  6. GLUTATHIONE [Concomitant]
     Active Substance: GLUTATHIONE
     Dosage: 100% POWDER
  7. CULTURELLE FOR KIDS [LACTOBACILLUS RHAMNOSUS] [Concomitant]
  8. FISH OIL [Concomitant]
     Active Substance: FISH OIL
     Dosage: 100?150 MG CAPSULE

REACTIONS (1)
  - Excessive cerumen production [Recovering/Resolving]

NARRATIVE: CASE EVENT DATE: 2020
